FAERS Safety Report 9804167 (Version 2)
Quarter: 2014Q1

REPORT INFORMATION
  Report Type: Spontaneous
  Country: US (occurrence: None)
  Receive Date: 20140106
  Receipt Date: 20140116
  Transmission Date: 20141002
  Serious: Yes (Hospitalization, Other)
  Sender: FDA-Public Use
  Company Number: ADR-2013-02365

PATIENT
  Sex: Male

DRUGS (7)
  1. BACLOFEN INTRATHECAL [Suspect]
     Indication: MUSCLE SPASTICITY
  2. MORPHINE [Suspect]
     Dosage: 3 SOMETHING PER DAY
  3. BUPIVACAINE [Suspect]
  4. BACLOFEN [Suspect]
     Dosage: 5 TIMES
  5. LOPRESSOR [Suspect]
  6. FLEXERIL [Suspect]
     Dosage: 3-4 TIMES
  7. ATIVAN [Suspect]

REACTIONS (7)
  - Device failure [None]
  - Blood pressure increased [None]
  - Dyspnoea [None]
  - Withdrawal syndrome [None]
  - Convulsion [None]
  - Myocardial infarction [None]
  - Muscle spasms [None]
